FAERS Safety Report 24589355 (Version 1)
Quarter: 2024Q4

REPORT INFORMATION
  Report Type: Spontaneous
  Country: US (occurrence: None)
  Receive Date: 20241106
  Receipt Date: 20241106
  Transmission Date: 20250115
  Serious: Yes (Hospitalization)
  Sender: Public
  Company Number: None

PATIENT
  Age: 60 Year
  Sex: Male
  Weight: 167 kg

DRUGS (1)
  1. HYDROCHLOROTHIAZIDE [Suspect]
     Active Substance: HYDROCHLOROTHIAZIDE
     Indication: Hypertension
     Dosage: FREQUENCY : DAILY;?
     Route: 048
     Dates: end: 20240811

REACTIONS (6)
  - Dizziness [None]
  - Brain fog [None]
  - Dizziness [None]
  - Coordination abnormal [None]
  - Anxiety [None]
  - Hyponatraemia [None]

NARRATIVE: CASE EVENT DATE: 20240807
